FAERS Safety Report 4447750-9 (Version None)
Quarter: 2004Q3

REPORT INFORMATION
  Report Type: 
  Country: None (occurrence: None)
  Receive Date: 20040812
  Receipt Date: 20040526
  Transmission Date: 20050211
  Serious: No
  Sender: FDA-Public Use
  Company Number: USA040568283

PATIENT
  Age: 61 Year
  Sex: Male
  Weight: 73 kg

DRUGS (4)
  1. CIALIS [Suspect]
     Indication: ERECTILE DYSFUNCTION
     Dosage: 20 MG DAY
     Dates: start: 20040101
  2. PRILOSEC [Concomitant]
  3. MULTI-VITAMIN [Concomitant]
  4. FOLIC ACID [Concomitant]

REACTIONS (2)
  - FATIGUE [None]
  - PERFORMANCE STATUS DECREASED [None]
